FAERS Safety Report 5324039-7 (Version None)
Quarter: 2007Q2

REPORT INFORMATION
  Report Type: 
  Country: None (occurrence: None)
  Receive Date: 20070514
  Receipt Date: 20070430
  Transmission Date: 20071010
  Serious: Yes (Death, Hospitalization)
  Sender: FDA-Public Use
  Company Number: US-ELI_LILLY_AND_COMPANY-US200611002806

PATIENT
  Age: 67 Year
  Sex: Female

DRUGS (11)
  1. TERIPARATIDE [Suspect]
     Indication: OSTEOPOROSIS
     Dosage: 20 UG, UNK
     Route: 058
     Dates: start: 20050722, end: 20061105
  2. VANCOMYCIN [Concomitant]
     Indication: ENDOCARDITIS
     Dates: start: 20061008
  3. ATENOLOL [Concomitant]
     Indication: HYPERTENSION
  4. ALTACE [Concomitant]
     Indication: HYPERTENSION
  5. LIPITOR [Concomitant]
     Indication: BLOOD CHOLESTEROL
  6. PROCRIT [Concomitant]
     Indication: ANAEMIA
  7. AVANDIA [Concomitant]
     Indication: DIABETES MELLITUS NON-INSULIN-DEPENDENT
  8. WELLBUTRIN [Concomitant]
     Indication: DEPRESSION
  9. LANTUS [Concomitant]
     Indication: DIABETES MELLITUS NON-INSULIN-DEPENDENT
  10. ASPIRIN [Concomitant]
  11. IRON SULFATETHIAMIN COMPOUND TAB [Concomitant]
     Indication: ANAEMIA

REACTIONS (4)
  - ACUTE MYOCARDIAL INFARCTION [None]
  - ANAEMIA [None]
  - ENDOCARDITIS BACTERIAL [None]
  - INTESTINAL MASS [None]
